FAERS Safety Report 8844398 (Version 1)
Quarter: 2012Q4

REPORT INFORMATION
  Report Type: 
  Country: CH (occurrence: CH)
  Receive Date: 20121017
  Receipt Date: 20121017
  Transmission Date: 20130627
  Serious: Yes (Hospitalization, Other)
  Sender: FDA-Public Use
  Company Number: PHHY2012CH089908

PATIENT
  Age: 75 Year
  Sex: Female
  Weight: 46 kg

DRUGS (1)
  1. ACLASTA [Suspect]
     Indication: OSTEOPOROSIS
     Dosage: 5 mg, UNK
     Route: 042
     Dates: start: 20110720

REACTIONS (5)
  - Diverticular perforation [Unknown]
  - Atrial fibrillation [Not Recovered/Not Resolved]
  - Heart rate irregular [Unknown]
  - Chest discomfort [Unknown]
  - Palpitations [Unknown]
